FAERS Safety Report 5143649-3 (Version None)
Quarter: 2006Q4

REPORT INFORMATION
  Report Type: 
  Country: None (occurrence: None)
  Receive Date: 20061103
  Receipt Date: 20061026
  Transmission Date: 20070319
  Serious: Yes (Disabling)
  Sender: FDA-Public Use
  Company Number: JP-BRISTOL-MYERS SQUIBB COMPANY-13562582

PATIENT
  Age: 82 Year
  Sex: Male

DRUGS (10)
  1. GATIFLO [Suspect]
     Indication: PNEUMONIA
     Route: 048
     Dates: start: 20060825, end: 20060827
  2. RYTHMODAN R [Concomitant]
     Route: 048
     Dates: end: 20060827
  3. NITOROL [Concomitant]
     Route: 048
  4. GASTER D [Concomitant]
     Route: 048
     Dates: end: 20060827
  5. CLARITHROMYCIN [Concomitant]
     Route: 048
     Dates: end: 20060827
  6. SPIRIVA [Concomitant]
     Route: 048
  7. MAGNESIUM OXIDE [Concomitant]
     Route: 048
  8. ENSURE [Concomitant]
     Route: 048
  9. BLOPRESS [Concomitant]
     Route: 048
  10. HOKUNALIN [Concomitant]
     Route: 062

REACTIONS (1)
  - HYPOGLYCAEMIA [None]
